FAERS Safety Report 7278954-8 (Version None)
Quarter: 2011Q1

REPORT INFORMATION
  Report Type: 
  Country: None (occurrence: None)
  Receive Date: 20110207
  Receipt Date: 20110125
  Transmission Date: 20110831
  Serious: Yes (Disabling, Other)
  Sender: FDA-Public Use
  Company Number: PHEH2007US10686

PATIENT
  Sex: Female

DRUGS (4)
  1. PREDNISONE [Concomitant]
  2. ZOMETA [Suspect]
     Indication: OSTEOPOROSIS
     Dosage: UNK, UNK
     Route: 042
     Dates: start: 20040401, end: 20040101
  3. PROZAC [Concomitant]
  4. ANALGESICS [Concomitant]

REACTIONS (28)
  - LOSS OF CONSCIOUSNESS [None]
  - SOMNOLENCE [None]
  - SWOLLEN TONGUE [None]
  - FALL [None]
  - DYSPNOEA [None]
  - MOBILITY DECREASED [None]
  - ENDOCRINE DISORDER [None]
  - URINARY TRACT INFECTION [None]
  - POSTURAL ORTHOSTATIC TACHYCARDIA SYNDROME [None]
  - ASTHENIA [None]
  - DEHYDRATION [None]
  - HYPOKALAEMIA [None]
  - TREMOR [None]
  - ABSCESS ORAL [None]
  - IRON DEFICIENCY ANAEMIA [None]
  - WEIGHT DECREASED [None]
  - HYPOCALCAEMIA [None]
  - COGNITIVE DISORDER [None]
  - NEOPLASM PROGRESSION [None]
  - CONTUSION [None]
  - SPINAL DISORDER [None]
  - AUTONOMIC NERVOUS SYSTEM IMBALANCE [None]
  - FATIGUE [None]
  - INFECTION [None]
  - BLOOD URINE PRESENT [None]
  - VITAMIN A DEFICIENCY [None]
  - LUNG NEOPLASM [None]
  - OEDEMA PERIPHERAL [None]
